FAERS Safety Report 16562475 (Version 1)
Quarter: 2019Q3

REPORT INFORMATION
  Report Type: Spontaneous
  Country: US (occurrence: US)
  Receive Date: 20190711
  Receipt Date: 20190711
  Transmission Date: 20191004
  Serious: No
  Sender: FDA-Public Use
  Company Number: US-AMAG PHARMACEUTICALS, INC.-AMAG201902992

PATIENT
  Age: 37 Year
  Sex: Female
  Weight: 62.65 kg

DRUGS (4)
  1. VAGINAL PROGESTERONE [Concomitant]
     Active Substance: PROGESTERONE
     Indication: PRODUCT USED FOR UNKNOWN INDICATION
     Dosage: TAKEN FOR ONE MONTH PRIOR TO THE START OF MAKENA.
  2. PRENATAL [Concomitant]
     Active Substance: VITAMINS
     Indication: PREGNANCY
  3. MAKENA [Suspect]
     Active Substance: HYDROXYPROGESTERONE CAPROATE
     Indication: PREMATURE DELIVERY
     Dosage: 275 MG /1.1 ML
     Route: 058
     Dates: start: 20190520
  4. DOCUSATE [Concomitant]
     Active Substance: DOCUSATE
     Indication: PRODUCT USED FOR UNKNOWN INDICATION

REACTIONS (3)
  - Injection site pain [Recovered/Resolved]
  - Product dose omission [Unknown]
  - Inappropriate schedule of product administration [Unknown]

NARRATIVE: CASE EVENT DATE: 20190520
